FAERS Safety Report 26215678 (Version 1)
Quarter: 2025Q4

REPORT INFORMATION
  Report Type: Report from Study
  Country: CA (occurrence: None)
  Receive Date: 20251231
  Receipt Date: 20251231
  Transmission Date: 20260118
  Serious: Yes (Other)
  Sender: UCB
  Company Number: CA-UCBSA-2025081888

PATIENT
  Age: 44 Year

DRUGS (2)
  1. BIMEKIZUMAB [Suspect]
     Active Substance: BIMEKIZUMAB
     Indication: Axial spondyloarthritis
     Dosage: UNK
  2. BIMEKIZUMAB [Suspect]
     Active Substance: BIMEKIZUMAB
     Indication: Psoriatic arthropathy

REACTIONS (4)
  - Psoriatic arthropathy [Unknown]
  - Axial spondyloarthritis [Unknown]
  - Condition aggravated [Unknown]
  - Drug ineffective [Unknown]
